FAERS Safety Report 9719157 (Version 2)
Quarter: 2013Q4

REPORT INFORMATION
  Report Type: Spontaneous
  Country: JP (occurrence: JP)
  Receive Date: 20131127
  Receipt Date: 20131127
  Transmission Date: 20140711
  Serious: Yes (Hospitalization, Congenital Anomaly)
  Sender: FDA-Public Use
  Company Number: PHHY2013JP057388

PATIENT
  Sex: 0
  Weight: 1.64 kg

DRUGS (2)
  1. OCTREOTIDE [Suspect]
  2. UTERON [Suspect]
     Route: 064

REACTIONS (11)
  - Myotonic dystrophy [Unknown]
  - Pulmonary hypoplasia [Unknown]
  - Low birth weight baby [Unknown]
  - Apgar score low [Unknown]
  - Pleural effusion [Unknown]
  - Premature baby [Unknown]
  - Skin discolouration [Unknown]
  - Jaundice cholestatic [Unknown]
  - Faeces pale [Unknown]
  - Hyperbilirubinaemia [Unknown]
  - Foetal exposure during pregnancy [Unknown]
